FAERS Safety Report 4565153-3 (Version None)
Quarter: 2005Q1

REPORT INFORMATION
  Report Type: 
  Country: None (occurrence: None)
  Receive Date: 20050127
  Receipt Date: 20050127
  Transmission Date: 20050727
  Serious: No
  Sender: FDA-Public Use
  Company Number: None

PATIENT
  Age: 15 Year
  Sex: Female
  Weight: 83.4619 kg

DRUGS (1)
  1. OLANZAPINE [Suspect]
     Dosage: 20MG DAILY PO
     Route: 048

REACTIONS (2)
  - BRUXISM [None]
  - TRISMUS [None]
